FAERS Safety Report 23559511 (Version 1)
Quarter: 2024Q1

REPORT INFORMATION
  Report Type: Report from Study
  Country: US (occurrence: US)
  Receive Date: 20240223
  Receipt Date: 20240223
  Transmission Date: 20240410
  Serious: Yes (Other)
  Sender: FDA-Public Use
  Company Number: US-OTSUKA-2024_004137

PATIENT
  Sex: Female
  Weight: 117.93 kg

DRUGS (2)
  1. ARIPIPRAZOLE [Suspect]
     Active Substance: ARIPIPRAZOLE
     Indication: Bipolar I disorder
     Dosage: 960 MG, EVERY 2 MONTHS
     Route: 030
  2. ABILIFY MAINTENA [Suspect]
     Active Substance: ARIPIPRAZOLE
     Indication: Bipolar I disorder
     Dosage: 400 MG, QM (ONCE A MONTH, SUV)
     Route: 030

REACTIONS (5)
  - Bipolar I disorder [Not Recovered/Not Resolved]
  - Injection site scar [Unknown]
  - Therapy change [Unknown]
  - Drug effect less than expected [Not Recovered/Not Resolved]
  - Off label use [Unknown]
